FAERS Safety Report 5370343-6 (Version None)
Quarter: 2007Q2

REPORT INFORMATION
  Report Type: 
  Country: None (occurrence: None)
  Receive Date: 20070625
  Receipt Date: 20070625
  Transmission Date: 20071010
  Serious: Yes (Life-Threatening, Hospitalization)
  Sender: FDA-Public Use
  Company Number: None

PATIENT
  Sex: Male
  Weight: 90 kg

DRUGS (5)
  1. ZOSYN [Suspect]
     Indication: PROPHYLAXIS
     Dosage: 3.375 G IV Q8H
     Route: 042
     Dates: start: 20060604, end: 20060608
  2. ZOSYN [Suspect]
     Indication: SEPSIS
     Dosage: 3.375 G IV Q8H
     Route: 042
     Dates: start: 20060604, end: 20060608
  3. ZOSYN [Suspect]
     Indication: STRESS ULCER
     Dosage: 3.375 G IV Q8H
     Route: 042
     Dates: start: 20060604, end: 20060608
  4. FAMOTIDINE [Suspect]
     Indication: STRESS ULCER
     Dosage: 20MG IV DAILY
     Route: 042
     Dates: start: 20060604, end: 20060608
  5. IMIPENEM [Concomitant]

REACTIONS (2)
  - PLATELET COUNT DECREASED [None]
  - SMALL INTESTINAL OBSTRUCTION [None]
